FAERS Safety Report 10228020 (Version 1)
Quarter: 2014Q1

REPORT INFORMATION
  Report Type: Spontaneous
  Country: US (occurrence: None)
  Receive Date: 20140306
  Receipt Date: 20140306
  Transmission Date: 20141002
  Serious: No
  Sender: FDA-Public Use
  Company Number: 163-21880-13071341

PATIENT
  Age: 84 Year
  Sex: Male

DRUGS (11)
  1. REVLIMID (LENALIDOMIDE) (10 MILLIGRAM, CAPSULES) [Suspect]
     Indication: MYELODYSPLASTIC SYNDROME
     Route: 048
     Dates: start: 20130701, end: 20130709
  2. ACETAMINOPHEN(PARACETAMOL) [Concomitant]
  3. FUROSEMIDE(FUROSEMIDE)? [Concomitant]
  4. METFORMIN HCL(METFORMIN HYDROCHLORIDE) [Concomitant]
  5. METOPROLOL TARTRATE(METOPROLOL TARTRATE) [Concomitant]
  6. PANTOPRAZOLE SODIUM(PANTOPRAZOLE SODIUM) [Concomitant]
  7. PLAVIX(CLOPIDOGREL SULFATE) [Concomitant]
  8. SIMVASTATIN(SIMVASTATIN)? [Concomitant]
  9. TAMBOCOR(FLECAINIDE ACETATE) [Concomitant]
  10. TAMSULOSIN HCL(TAMSULOSIN HYDROCHLORIDE) [Concomitant]
  11. PACKED RED CELLS-LEUKODEPLETED(RED BLOOD CELLS, LEUCOCYTE DEPLETED) [Concomitant]

REACTIONS (1)
  - Hypersensitivity [None]
